FAERS Safety Report 9737132 (Version 1)
Quarter: 2013Q4

REPORT INFORMATION
  Report Type: Spontaneous
  Country: US (occurrence: US)
  Receive Date: 20131206
  Receipt Date: 20131206
  Transmission Date: 20140711
  Serious: Yes (Hospitalization)
  Sender: FDA-Public Use
  Company Number: US-INCYTE CORPORATION-2013IN002909

PATIENT
  Age: 68 Year
  Sex: Female

DRUGS (6)
  1. JAKAFI [Suspect]
     Indication: LYMPHATIC DISORDER
     Dosage: 5 MG, BID
     Route: 048
     Dates: start: 201305
  2. JAKAFI [Suspect]
     Indication: BONE MARROW FAILURE
  3. TYLENOL ARTHRITIS EXTENDED RELIEF [Concomitant]
     Dosage: 650 MG, UNK
  4. TRAMADOL HCL [Interacting]
     Dosage: 50 MG, UNK
  5. ATENOLOL [Concomitant]
     Dosage: 25 MG, UNK
  6. PROCHLORPERAZINE [Concomitant]
     Dosage: 10 MG, UNK

REACTIONS (6)
  - Colitis [Recovered/Resolved]
  - Dental caries [Unknown]
  - Gingivitis [Unknown]
  - Hepatosplenomegaly [Unknown]
  - Toothache [Not Recovered/Not Resolved]
  - Weight increased [Unknown]
